FAERS Safety Report 9116340 (Version 1)
Quarter: 2013Q1

REPORT INFORMATION
  Report Type: Spontaneous
  Country: JM (occurrence: JM)
  Receive Date: 20130225
  Receipt Date: 20130225
  Transmission Date: 20140127
  Serious: Yes (Death, Hospitalization)
  Sender: FDA-Public Use
  Company Number: JM-B.I. PHARMACEUTICALS,INC./RIDGEFIELD-2013-CN-00281CN

PATIENT
  Age: 65 Year
  Sex: Male

DRUGS (5)
  1. PRADAX [Suspect]
     Indication: ATRIAL FIBRILLATION
     Dates: start: 201201
  2. CRESTOR [Concomitant]
  3. CLOPIDOGREL [Concomitant]
  4. LASIX [Concomitant]
  5. ACE INHIBITOR [Concomitant]

REACTIONS (1)
  - Cardiac failure [Fatal]
